FAERS Safety Report 11491165 (Version 2)
Quarter: 2016Q3

REPORT INFORMATION
  Report Type: Spontaneous
  Country: US (occurrence: US)
  Receive Date: 20150910
  Receipt Date: 20160907
  Transmission Date: 20161109
  Serious: Yes (Other)
  Sender: FDA-Public Use
  Company Number: US-JNJFOC-20150811172

PATIENT
  Age: 44 Year
  Sex: Female
  Weight: 79.38 kg

DRUGS (4)
  1. LEVAQUIN [Suspect]
     Active Substance: LEVOFLOXACIN
     Indication: INFECTION
     Route: 048
     Dates: start: 20080826, end: 20080905
  2. LEVAQUIN [Suspect]
     Active Substance: LEVOFLOXACIN
     Indication: ABSCESS
     Route: 048
     Dates: start: 20080826, end: 20080905
  3. LEVAQUIN [Suspect]
     Active Substance: LEVOFLOXACIN
     Indication: INFECTION
     Route: 048
     Dates: start: 20080915, end: 20080925
  4. LEVAQUIN [Suspect]
     Active Substance: LEVOFLOXACIN
     Indication: ABSCESS
     Route: 048
     Dates: start: 20080915, end: 20080925

REACTIONS (4)
  - Neuropathy peripheral [Unknown]
  - Tendon pain [Unknown]
  - Contusion [Unknown]
  - Musculoskeletal disorder [Unknown]

NARRATIVE: CASE EVENT DATE: 200809
